FAERS Safety Report 14279601 (Version 18)
Quarter: 2018Q4

REPORT INFORMATION
  Report Type: Report from Study
  Country: DE (occurrence: DE)
  Receive Date: 20171212
  Receipt Date: 20181008
  Transmission Date: 20190204
  Serious: Yes (Other)
  Sender: FDA-Public Use
  Company Number: DE-TEVA-2017-DE-831272

PATIENT
  Age: 62 Year
  Sex: Male
  Weight: 91 kg

DRUGS (150)
  1. DEXAMETHASONE. [Suspect]
     Active Substance: DEXAMETHASONE
     Route: 065
     Dates: start: 20170815, end: 20170815
  2. DEXAMETHASONE. [Suspect]
     Active Substance: DEXAMETHASONE
     Route: 065
     Dates: start: 20170502, end: 20170502
  3. DEXAMETHASONE. [Suspect]
     Active Substance: DEXAMETHASONE
     Route: 065
     Dates: start: 20171127, end: 20171127
  4. DEXAMETHASONE. [Suspect]
     Active Substance: DEXAMETHASONE
     Route: 065
     Dates: start: 20170725, end: 20170725
  5. DEXAMETHASONE. [Suspect]
     Active Substance: DEXAMETHASONE
     Route: 065
     Dates: start: 20171106, end: 20171106
  6. DEXAMETHASONE. [Suspect]
     Active Substance: DEXAMETHASONE
     Route: 065
     Dates: start: 20170613, end: 20170613
  7. DEXAMETHASONE. [Suspect]
     Active Substance: DEXAMETHASONE
     Route: 065
     Dates: start: 20170925, end: 20170925
  8. CARFILZOMIB [Suspect]
     Active Substance: CARFILZOMIB
     Dosage: 56 MG, UNK
     Route: 042
     Dates: start: 20170911, end: 20170912
  9. CARFILZOMIB [Suspect]
     Active Substance: CARFILZOMIB
     Dosage: 56 MG, UNK
     Route: 042
     Dates: start: 20171107, end: 20171107
  10. CARFILZOMIB [Suspect]
     Active Substance: CARFILZOMIB
     Dosage: 56 MG, UNK
     Route: 042
     Dates: start: 20171010, end: 20171010
  11. CARFILZOMIB [Suspect]
     Active Substance: CARFILZOMIB
     Dosage: 20 MG, UNK
     Route: 042
     Dates: start: 20170509, end: 20170510
  12. CARFILZOMIB [Suspect]
     Active Substance: CARFILZOMIB
     Dosage: 56 MG, UNK
     Route: 042
     Dates: start: 20170925, end: 20170926
  13. CARFILZOMIB [Suspect]
     Active Substance: CARFILZOMIB
     Route: 042
     Dates: start: 20171211, end: 20171212
  14. FORTECORTIN [Suspect]
     Active Substance: DEXAMETHASONE
     Dosage: 40 MILLIGRAM DAILY;
     Route: 065
     Dates: start: 20170613, end: 20170613
  15. FORTECORTIN [Suspect]
     Active Substance: DEXAMETHASONE
     Dosage: 20 MILLIGRAM DAILY;
     Route: 065
     Dates: start: 20171023, end: 20171023
  16. FORTECORTIN [Suspect]
     Active Substance: DEXAMETHASONE
     Dosage: 20 MILLIGRAM DAILY;
     Route: 065
     Dates: start: 20170911, end: 20170911
  17. FORTECORTIN [Suspect]
     Active Substance: DEXAMETHASONE
     Dosage: 20 MILLIGRAM DAILY;
     Route: 065
     Dates: start: 20171113, end: 20171113
  18. FORTECORTIN [Suspect]
     Active Substance: DEXAMETHASONE
     Dosage: 20 MILLIGRAM DAILY;
     Route: 065
     Dates: start: 20171127, end: 20171127
  19. PANTOPRAZOL [Concomitant]
     Active Substance: PANTOPRAZOLE SODIUM
     Indication: PROPHYLAXIS
     Route: 065
     Dates: start: 2013
  20. DEXAMETHASONE. [Suspect]
     Active Substance: DEXAMETHASONE
     Route: 065
     Dates: start: 20170926, end: 20170926
  21. DEXAMETHASONE. [Suspect]
     Active Substance: DEXAMETHASONE
     Route: 065
     Dates: start: 20171113, end: 20171113
  22. DEXAMETHASONE. [Suspect]
     Active Substance: DEXAMETHASONE
     Route: 065
     Dates: start: 20170627, end: 20170627
  23. DEXAMETHASONE. [Suspect]
     Active Substance: DEXAMETHASONE
     Route: 065
     Dates: start: 20171010, end: 20171010
  24. DEXAMETHASONE. [Suspect]
     Active Substance: DEXAMETHASONE
     Route: 065
     Dates: start: 20170516, end: 20170516
  25. CARFILZOMIB [Suspect]
     Active Substance: CARFILZOMIB
     Dosage: 27 MG, UNK
     Route: 042
     Dates: start: 20170809, end: 20170809
  26. CARFILZOMIB [Suspect]
     Active Substance: CARFILZOMIB
     Dosage: 56 MG, UNK
     Route: 042
     Dates: start: 20170926, end: 20170926
  27. CARFILZOMIB [Suspect]
     Active Substance: CARFILZOMIB
     Dosage: 56 MG, UNK
     Route: 042
     Dates: start: 20171114, end: 20171114
  28. CARFILZOMIB [Suspect]
     Active Substance: CARFILZOMIB
     Dosage: 27 MG, UNK
     Route: 042
     Dates: start: 20170530, end: 20170531
  29. CARFILZOMIB [Suspect]
     Active Substance: CARFILZOMIB
     Dosage: 20 MG, UNK
     Route: 042
     Dates: start: 20170510, end: 20170510
  30. CARFILZOMIB [Suspect]
     Active Substance: CARFILZOMIB
     Dosage: 20 MG, UNK
     Route: 042
     Dates: start: 20170517, end: 20170517
  31. CARFILZOMIB [Suspect]
     Active Substance: CARFILZOMIB
     Dosage: 56 MG, UNK
     Route: 042
     Dates: start: 20171024, end: 20171024
  32. CARFILZOMIB [Suspect]
     Active Substance: CARFILZOMIB
     Route: 042
     Dates: start: 20170606, end: 20170606
  33. FORTECORTIN [Suspect]
     Active Substance: DEXAMETHASONE
     Dosage: 20 MILLIGRAM DAILY;
     Route: 065
     Dates: start: 20171003, end: 20171003
  34. FORTECORTIN [Suspect]
     Active Substance: DEXAMETHASONE
     Dosage: 20 MILLIGRAM DAILY;
     Route: 065
     Dates: start: 20171010, end: 20171010
  35. FORTECORTIN [Suspect]
     Active Substance: DEXAMETHASONE
     Dosage: 20 MILLIGRAM DAILY;
     Route: 065
     Dates: start: 20171002, end: 20171002
  36. FORTECORTIN [Suspect]
     Active Substance: DEXAMETHASONE
     Route: 065
     Dates: start: 20171120, end: 20171120
  37. CITALOPRAM [Concomitant]
     Active Substance: CITALOPRAM HYDROBROMIDE
     Indication: DEPRESSION
     Dosage: 20 MILLIGRAM DAILY;
     Route: 065
     Dates: start: 2013
  38. DEXAMETHASONE. [Suspect]
     Active Substance: DEXAMETHASONE
     Indication: PLASMA CELL MYELOMA
     Route: 065
     Dates: start: 20171001, end: 20171001
  39. DEXAMETHASONE. [Suspect]
     Active Substance: DEXAMETHASONE
     Route: 065
     Dates: start: 20171023, end: 20171023
  40. DEXAMETHASONE. [Suspect]
     Active Substance: DEXAMETHASONE
     Route: 065
     Dates: start: 20171031, end: 20171031
  41. DEXAMETHASONE. [Suspect]
     Active Substance: DEXAMETHASONE
     Route: 065
     Dates: start: 20170918, end: 20170918
  42. CARFILZOMIB [Suspect]
     Active Substance: CARFILZOMIB
     Dosage: 27 MG, UNK
     Route: 042
     Dates: start: 20170802, end: 20170802
  43. CARFILZOMIB [Suspect]
     Active Substance: CARFILZOMIB
     Dosage: 27 MG, UNK
     Route: 042
     Dates: start: 20170801, end: 20170802
  44. CARFILZOMIB [Suspect]
     Active Substance: CARFILZOMIB
     Dosage: 27 MG, UNK
     Route: 042
     Dates: start: 20170726, end: 20170726
  45. FORTECORTIN [Suspect]
     Active Substance: DEXAMETHASONE
     Dosage: 20 MILLIGRAM DAILY;
     Route: 065
     Dates: start: 20171128, end: 20171128
  46. FORTECORTIN [Suspect]
     Active Substance: DEXAMETHASONE
     Dosage: 40 MILLIGRAM DAILY;
     Route: 065
     Dates: start: 20170725, end: 20170725
  47. FORTECORTIN [Suspect]
     Active Substance: DEXAMETHASONE
     Dosage: 40 MILLIGRAM DAILY;
     Route: 065
     Dates: start: 20170704, end: 20170704
  48. FORTECORTIN [Suspect]
     Active Substance: DEXAMETHASONE
     Dosage: 40 MILLIGRAM DAILY;
     Route: 065
     Dates: start: 20170620, end: 20170620
  49. FORTECORTIN [Suspect]
     Active Substance: DEXAMETHASONE
     Dosage: 20 MILLIGRAM DAILY;
     Route: 065
     Dates: start: 20170912, end: 20170912
  50. FORTECORTIN [Suspect]
     Active Substance: DEXAMETHASONE
     Route: 065
     Dates: start: 20170502, end: 20170815
  51. INNOHEP [Concomitant]
     Active Substance: TINZAPARIN SODIUM
     Indication: PROPHYLAXIS
     Dosage: .9 ML DAILY;
     Route: 065
     Dates: start: 20170615
  52. MIRTAZAPIN [Concomitant]
     Active Substance: MIRTAZAPINE
     Indication: DEPRESSION
     Dosage: 30 MILLIGRAM DAILY;
     Route: 065
     Dates: start: 2013
  53. DEXAMETHASONE. [Suspect]
     Active Substance: DEXAMETHASONE
     Route: 065
     Dates: start: 20170711, end: 20170711
  54. DEXAMETHASONE. [Suspect]
     Active Substance: DEXAMETHASONE
     Route: 065
     Dates: start: 20170606, end: 20170606
  55. DEXAMETHASONE. [Suspect]
     Active Substance: DEXAMETHASONE
     Route: 065
     Dates: start: 20171121, end: 20171121
  56. DEXAMETHASONE. [Suspect]
     Active Substance: DEXAMETHASONE
     Route: 065
     Dates: start: 20170509, end: 20170509
  57. DEXAMETHASONE. [Suspect]
     Active Substance: DEXAMETHASONE
     Route: 065
     Dates: start: 20171024, end: 20171024
  58. CARFILZOMIB [Suspect]
     Active Substance: CARFILZOMIB
     Indication: PLASMA CELL MYELOMA
     Dosage: 27 MG, UNKNOWN
     Route: 042
     Dates: start: 20170712, end: 20170712
  59. CARFILZOMIB [Suspect]
     Active Substance: CARFILZOMIB
     Dosage: 27 MG, UNK
     Route: 042
     Dates: start: 20170606, end: 20170607
  60. CARFILZOMIB [Suspect]
     Active Substance: CARFILZOMIB
     Dosage: 27 MG, UNK
     Route: 042
     Dates: start: 20170725, end: 20170726
  61. CARFILZOMIB [Suspect]
     Active Substance: CARFILZOMIB
     Dosage: 27 MG, UNK
     Route: 042
     Dates: start: 20170711, end: 20170712
  62. CARFILZOMIB [Suspect]
     Active Substance: CARFILZOMIB
     Dosage: 56 MG, UNK
     Route: 042
     Dates: start: 20170919, end: 20170919
  63. CARFILZOMIB [Suspect]
     Active Substance: CARFILZOMIB
     Dosage: 27 MG, UNK
     Route: 042
     Dates: start: 20170607, end: 20170607
  64. CARFILZOMIB [Suspect]
     Active Substance: CARFILZOMIB
     Route: 042
     Dates: start: 20170606, end: 20170808
  65. CARFILZOMIB [Suspect]
     Active Substance: CARFILZOMIB
     Route: 042
     Dates: start: 20170919, end: 20170919
  66. CARFILZOMIB [Suspect]
     Active Substance: CARFILZOMIB
     Route: 042
     Dates: start: 20171114, end: 20171114
  67. FORTECORTIN [Suspect]
     Active Substance: DEXAMETHASONE
     Dosage: 20 MILLIGRAM DAILY;
     Route: 065
     Dates: start: 20170926, end: 20170926
  68. FORTECORTIN [Suspect]
     Active Substance: DEXAMETHASONE
     Dosage: 20 MILLIGRAM DAILY;
     Route: 065
     Dates: start: 20171024, end: 20171024
  69. FORTECORTIN [Suspect]
     Active Substance: DEXAMETHASONE
     Dosage: 40 MILLIGRAM DAILY;
     Route: 065
     Dates: start: 20170808, end: 20170808
  70. FORTECORTIN [Suspect]
     Active Substance: DEXAMETHASONE
     Dosage: 40 MILLIGRAM DAILY;
     Route: 065
     Dates: start: 20170627, end: 20170627
  71. FORTECORTIN [Suspect]
     Active Substance: DEXAMETHASONE
     Dosage: 20 MILLIGRAM DAILY;
     Route: 065
     Dates: start: 20170918, end: 20170918
  72. FORTECORTIN [Suspect]
     Active Substance: DEXAMETHASONE
     Dosage: 20 MILLIGRAM DAILY;
     Route: 065
     Dates: start: 20170925, end: 20170925
  73. FORTECORTIN [Suspect]
     Active Substance: DEXAMETHASONE
     Dosage: 20 MILLIGRAM DAILY;
     Route: 065
     Dates: start: 20171120, end: 20171120
  74. HYDROMORPHONHYDROCHLORID BETA [Concomitant]
     Dates: start: 2013
  75. DEXAMETHASONE. [Suspect]
     Active Substance: DEXAMETHASONE
     Route: 065
     Dates: start: 20171120, end: 20171120
  76. DEXAMETHASONE. [Suspect]
     Active Substance: DEXAMETHASONE
     Route: 065
     Dates: start: 20171107, end: 20171107
  77. DEXAMETHASONE. [Suspect]
     Active Substance: DEXAMETHASONE
     Route: 065
     Dates: start: 20171030, end: 20171030
  78. DEXAMETHASONE. [Suspect]
     Active Substance: DEXAMETHASONE
     Route: 065
     Dates: start: 20171114, end: 20171114
  79. DEXAMETHASONE. [Suspect]
     Active Substance: DEXAMETHASONE
     Route: 065
     Dates: start: 20171002, end: 20171002
  80. DEXAMETHASONE. [Suspect]
     Active Substance: DEXAMETHASONE
     Route: 065
     Dates: start: 20170912, end: 20170912
  81. CARFILZOMIB [Suspect]
     Active Substance: CARFILZOMIB
     Dosage: 27 MG, UNK
     Route: 042
     Dates: start: 20170704, end: 20170705
  82. CARFILZOMIB [Suspect]
     Active Substance: CARFILZOMIB
     Dosage: 56 MG, UNK
     Route: 042
     Dates: start: 20171113, end: 20171113
  83. CARFILZOMIB [Suspect]
     Active Substance: CARFILZOMIB
     Dosage: 56 MG, UNK
     Route: 042
     Dates: start: 20171023, end: 20171024
  84. CARFILZOMIB [Suspect]
     Active Substance: CARFILZOMIB
     Route: 042
     Dates: start: 20170801, end: 20170801
  85. CARFILZOMIB [Suspect]
     Active Substance: CARFILZOMIB
     Route: 042
     Dates: start: 20170502, end: 20170517
  86. LENALIDOMIDE [Suspect]
     Active Substance: LENALIDOMIDE
     Indication: PLASMA CELL MYELOMA
     Dosage: 25 MG
     Route: 048
     Dates: start: 20170725, end: 20170814
  87. FORTECORTIN [Suspect]
     Active Substance: DEXAMETHASONE
     Dosage: 20 MILLIGRAM DAILY;
     Route: 065
     Dates: start: 20170919, end: 20170919
  88. FORTECORTIN [Suspect]
     Active Substance: DEXAMETHASONE
     Dosage: 20 MILLIGRAM DAILY;
     Route: 065
     Dates: start: 20171031, end: 20171031
  89. FORTECORTIN [Suspect]
     Active Substance: DEXAMETHASONE
     Dosage: 40 MILLIGRAM DAILY;
     Route: 065
     Dates: start: 20170718, end: 20170718
  90. FORTECORTIN [Suspect]
     Active Substance: DEXAMETHASONE
     Dosage: 20 MILLIGRAM DAILY;
     Route: 065
     Dates: start: 20171114, end: 20171114
  91. FORTECORTIN [Suspect]
     Active Substance: DEXAMETHASONE
     Dosage: 40 MILLIGRAM DAILY;
     Route: 065
     Dates: start: 20170711, end: 20170711
  92. FORTECORTIN [Suspect]
     Active Substance: DEXAMETHASONE
     Dosage: 20 MILLIGRAM DAILY;
     Route: 065
     Dates: start: 20171017, end: 20171017
  93. DEXAMETHASONE. [Suspect]
     Active Substance: DEXAMETHASONE
     Route: 065
     Dates: start: 20170808, end: 20170808
  94. DEXAMETHASONE. [Suspect]
     Active Substance: DEXAMETHASONE
     Route: 065
     Dates: start: 20170911, end: 20170911
  95. DEXAMETHASONE. [Suspect]
     Active Substance: DEXAMETHASONE
     Route: 065
     Dates: start: 20170704, end: 20170704
  96. DEXAMETHASONE. [Suspect]
     Active Substance: DEXAMETHASONE
     Route: 065
     Dates: start: 20170523, end: 20170523
  97. DEXAMETHASONE. [Suspect]
     Active Substance: DEXAMETHASONE
     Route: 065
     Dates: start: 20171003, end: 20171003
  98. DEXAMETHASONE. [Suspect]
     Active Substance: DEXAMETHASONE
     Route: 065
     Dates: start: 20171016, end: 20171016
  99. DEXAMETHASONE. [Suspect]
     Active Substance: DEXAMETHASONE
     Route: 065
     Dates: start: 20170718, end: 20170718
  100. CARFILZOMIB [Suspect]
     Active Substance: CARFILZOMIB
     Dosage: 56 MG, UNK
     Route: 042
     Dates: start: 20171016, end: 20171017
  101. CARFILZOMIB [Suspect]
     Active Substance: CARFILZOMIB
     Dosage: 27 MG, UNK
     Route: 042
     Dates: start: 20170705, end: 20170705
  102. CARFILZOMIB [Suspect]
     Active Substance: CARFILZOMIB
     Dosage: 56 MG, UNK
     Route: 042
     Dates: start: 20171106, end: 20171107
  103. CARFILZOMIB [Suspect]
     Active Substance: CARFILZOMIB
     Dosage: 20 MG, UNK
     Route: 042
     Dates: start: 20170503, end: 20170503
  104. CARFILZOMIB [Suspect]
     Active Substance: CARFILZOMIB
     Dosage: 27 MG, UNK
     Route: 042
     Dates: start: 20170613, end: 20170614
  105. CARFILZOMIB [Suspect]
     Active Substance: CARFILZOMIB
     Dosage: 56 MG, UNK
     Route: 042
     Dates: start: 20171204
  106. CARFILZOMIB [Suspect]
     Active Substance: CARFILZOMIB
     Route: 065
     Dates: start: 20171017, end: 20171017
  107. LENALIDOMIDE [Suspect]
     Active Substance: LENALIDOMIDE
     Dosage: 25 MG, UNK
     Route: 065
     Dates: start: 20170530, end: 20170619
  108. FORTECORTIN [Suspect]
     Active Substance: DEXAMETHASONE
     Dosage: 20 MILLIGRAM DAILY;
     Route: 065
     Dates: start: 20171121, end: 20171121
  109. FORTECORTIN [Suspect]
     Active Substance: DEXAMETHASONE
     Dosage: 20 MILLIGRAM DAILY;
     Route: 065
     Dates: start: 20171009, end: 20171009
  110. FORTECORTIN [Suspect]
     Active Substance: DEXAMETHASONE
     Dosage: 40 MILLIGRAM DAILY;
     Route: 065
     Dates: start: 20170801, end: 20170801
  111. FORTECORTIN [Suspect]
     Active Substance: DEXAMETHASONE
     Dosage: 40 MILLIGRAM DAILY;
     Route: 065
     Dates: start: 20170606, end: 20170606
  112. FORTECORTIN [Suspect]
     Active Substance: DEXAMETHASONE
     Dosage: 20 MILLIGRAM DAILY;
     Route: 065
     Dates: start: 20171016, end: 20171016
  113. FORTECORTIN [Suspect]
     Active Substance: DEXAMETHASONE
     Dosage: 40 MILLIGRAM DAILY;
     Route: 065
     Dates: start: 20170516, end: 20170516
  114. FORTECORTIN [Suspect]
     Active Substance: DEXAMETHASONE
     Route: 065
     Dates: start: 20171106, end: 20171106
  115. DEXAMETHASONE. [Suspect]
     Active Substance: DEXAMETHASONE
     Route: 065
     Dates: start: 20171009, end: 20171009
  116. DEXAMETHASONE. [Suspect]
     Active Substance: DEXAMETHASONE
     Route: 065
     Dates: start: 20171017, end: 20171017
  117. DEXAMETHASONE. [Suspect]
     Active Substance: DEXAMETHASONE
     Route: 065
     Dates: start: 20171128, end: 20171128
  118. DEXAMETHASONE. [Suspect]
     Active Substance: DEXAMETHASONE
     Route: 065
     Dates: start: 20170530, end: 20170530
  119. CARFILZOMIB [Suspect]
     Active Substance: CARFILZOMIB
     Dosage: 27 MG, UNK
     Route: 042
     Dates: start: 20170808, end: 20170809
  120. CARFILZOMIB [Suspect]
     Active Substance: CARFILZOMIB
     Dosage: 20 MG, UNK
     Route: 042
     Dates: start: 20170516, end: 20170517
  121. CARFILZOMIB [Suspect]
     Active Substance: CARFILZOMIB
     Dosage: 27 MG, UNK
     Route: 042
     Dates: start: 20170628, end: 20170628
  122. CARFILZOMIB [Suspect]
     Active Substance: CARFILZOMIB
     Dosage: 56 MG, UNK
     Route: 042
     Dates: start: 20171121, end: 20171121
  123. CARFILZOMIB [Suspect]
     Active Substance: CARFILZOMIB
     Dosage: 27 MG, UNK
     Route: 042
     Dates: start: 20170614, end: 20170614
  124. CARFILZOMIB [Suspect]
     Active Substance: CARFILZOMIB
     Dosage: 56 MG, UNK
     Route: 042
     Dates: start: 20170918, end: 20170919
  125. LENALIDOMIDE [Suspect]
     Active Substance: LENALIDOMIDE
     Dosage: 25 MG, UNK
     Route: 065
     Dates: start: 20170627, end: 20170717
  126. LENALIDOMIDE [Suspect]
     Active Substance: LENALIDOMIDE
     Dosage: 25 MG, UNK
     Route: 048
     Dates: start: 20170502, end: 20170522
  127. FORTECORTIN [Suspect]
     Active Substance: DEXAMETHASONE
     Indication: PLASMA CELL MYELOMA
     Dosage: 40 MILLIGRAM DAILY;
     Route: 065
     Dates: start: 20170523, end: 20170523
  128. FORTECORTIN [Suspect]
     Active Substance: DEXAMETHASONE
     Dosage: 40 MILLIGRAM DAILY;
     Route: 065
     Dates: start: 20170530, end: 20170530
  129. FORTECORTIN [Suspect]
     Active Substance: DEXAMETHASONE
     Dosage: 20 MILLIGRAM DAILY;
     Route: 065
     Dates: start: 20171107, end: 20171107
  130. FORTECORTIN [Suspect]
     Active Substance: DEXAMETHASONE
     Dosage: 40 MILLIGRAM DAILY;
     Route: 065
     Dates: start: 20170502, end: 20170502
  131. FORTECORTIN [Suspect]
     Active Substance: DEXAMETHASONE
     Dosage: 20 MILLIGRAM DAILY;
     Route: 065
     Dates: start: 20171030, end: 20171030
  132. FORTECORTIN [Suspect]
     Active Substance: DEXAMETHASONE
     Route: 065
     Dates: start: 20170911, end: 20170911
  133. FORTECORTIN [Suspect]
     Active Substance: DEXAMETHASONE
     Route: 065
     Dates: start: 20180115, end: 20180116
  134. HYDROMORPHONHYDROCHLORID BETA [Concomitant]
     Indication: PAIN
     Dosage: 16 MILLIGRAM DAILY;
     Route: 065
     Dates: start: 2013
  135. CLOTRIMAZOLE. [Concomitant]
     Active Substance: CLOTRIMAZOLE
     Indication: PROPHYLAXIS
     Route: 065
     Dates: start: 20170619
  136. DEXAMETHASONE. [Suspect]
     Active Substance: DEXAMETHASONE
     Route: 065
     Dates: start: 20170620, end: 20170620
  137. DEXAMETHASONE. [Suspect]
     Active Substance: DEXAMETHASONE
     Route: 065
     Dates: start: 20170919, end: 20170919
  138. CARFILZOMIB [Suspect]
     Active Substance: CARFILZOMIB
     Dosage: 27 MG, UNK
     Route: 042
     Dates: start: 20170531, end: 20170531
  139. CARFILZOMIB [Suspect]
     Active Substance: CARFILZOMIB
     Dosage: 56 MG, UNK
     Route: 042
     Dates: start: 20171017, end: 20171017
  140. CARFILZOMIB [Suspect]
     Active Substance: CARFILZOMIB
     Dosage: 27 MG, UNK
     Route: 042
     Dates: start: 20170627, end: 20170628
  141. CARFILZOMIB [Suspect]
     Active Substance: CARFILZOMIB
     Dosage: 56 MG, UNK
     Route: 042
     Dates: start: 20171120, end: 20171120
  142. CARFILZOMIB [Suspect]
     Active Substance: CARFILZOMIB
     Dosage: 56 MG, UNK
     Route: 042
     Dates: start: 20171009, end: 20171010
  143. CARFILZOMIB [Suspect]
     Active Substance: CARFILZOMIB
     Dosage: 20 MG, UNK
     Route: 042
     Dates: start: 20170502, end: 20170503
  144. CARFILZOMIB [Suspect]
     Active Substance: CARFILZOMIB
     Dosage: 56 MG, UNK
     Route: 042
     Dates: start: 20170912, end: 20170912
  145. CARFILZOMIB [Suspect]
     Active Substance: CARFILZOMIB
     Route: 042
     Dates: start: 20170912, end: 20170912
  146. FORTECORTIN [Suspect]
     Active Substance: DEXAMETHASONE
     Dosage: 40 MILLIGRAM DAILY;
     Route: 065
     Dates: start: 20170509, end: 20170509
  147. FORTECORTIN [Suspect]
     Active Substance: DEXAMETHASONE
     Dosage: 40 MILLIGRAM DAILY;
     Route: 065
     Dates: start: 20170815, end: 20170815
  148. FORTECORTIN [Suspect]
     Active Substance: DEXAMETHASONE
     Dosage: 20 MILLIGRAM DAILY;
     Route: 065
     Dates: start: 20171106, end: 20171106
  149. ZOMETA [Concomitant]
     Active Substance: ZOLEDRONIC ACID
     Indication: OSTEOLYSIS
     Route: 065
     Dates: start: 20170330
  150. CANESTEN [Concomitant]
     Active Substance: CLOTRIMAZOLE
     Indication: PROPHYLAXIS
     Dosage: 99 UNKNOWN
     Route: 065
     Dates: start: 20170719

REACTIONS (6)
  - Leukopenia [Recovered/Resolved]
  - Thrombocytopenia [Recovered/Resolved]
  - Neutropenia [Recovered/Resolved]
  - Neutropenia [Recovered/Resolved]
  - Lymphopenia [Recovered/Resolved]
  - Leukopenia [Recovered/Resolved]

NARRATIVE: CASE EVENT DATE: 20171009
